FAERS Safety Report 6923972-X (Version None)
Quarter: 2010Q3

REPORT INFORMATION
  Report Type: 
  Country: None (occurrence: None)
  Receive Date: 20100813
  Receipt Date: 20100616
  Transmission Date: 20110219
  Serious: Yes (Death, Hospitalization)
  Sender: FDA-Public Use
  Company Number: ES-ELI_LILLY_AND_COMPANY-ES201008003417

PATIENT
  Sex: Female
  Weight: 48 kg

DRUGS (3)
  1. FORTEO [Suspect]
     Indication: OSTEOPOROSIS
     Dosage: 20 UG, UNK
     Route: 058
     Dates: end: 20100530
  2. GABAPENTIN [Concomitant]
     Dosage: UNK, DAILY (1/D)
  3. MEMANTINE HCL [Concomitant]
     Indication: DEMENTIA
     Dosage: 20 MG, DAILY (1/D)

REACTIONS (2)
  - DEATH [None]
  - TACHYCARDIA [None]
